FAERS Safety Report 5322773-6 (Version None)
Quarter: 2007Q2

REPORT INFORMATION
  Report Type: 
  Country: None (occurrence: None)
  Receive Date: 20070511
  Receipt Date: 20070502
  Transmission Date: 20071010
  Serious: Yes (Other)
  Sender: FDA-Public Use
  Company Number: AU-PFIZER INC-2007022491

PATIENT
  Sex: Male
  Weight: 65 kg

DRUGS (10)
  1. ALDACTONE [Suspect]
     Indication: CARDIAC FAILURE CONGESTIVE
     Dosage: DAILY DOSE:12.5MG-FREQ:DAILY
     Route: 048
  2. LASIX [Concomitant]
     Dosage: DAILY DOSE:20MG-FREQ:DAILY
     Route: 048
  3. METFORMIN HCL [Concomitant]
  4. LANOXIN [Concomitant]
     Route: 048
  5. PROGOUT [Concomitant]
     Dosage: DAILY DOSE:200MG-FREQ:DAILY
  6. CARVEDILOL [Concomitant]
     Route: 048
  7. LISINOPRIL [Concomitant]
     Dosage: DAILY DOSE:5MG-FREQ:DAILY
  8. LIPITOR [Concomitant]
     Dosage: DAILY DOSE:10MG-FREQ:DAILY
  9. WARFARIN [Concomitant]
     Dosage: DAILY DOSE:3MG-FREQ:DAILY
  10. CARTIA XT [Concomitant]

REACTIONS (3)
  - BREAST ENLARGEMENT [None]
  - BREAST PAIN [None]
  - CARDIOVERSION [None]
